FAERS Safety Report 21225507 (Version 1)
Quarter: 2022Q3

REPORT INFORMATION
  Report Type: Spontaneous
  Country: JP (occurrence: None)
  Receive Date: 20220818
  Receipt Date: 20220818
  Transmission Date: 20221026
  Serious: Yes (Hospitalization, Other)
  Sender: FDA-Public Use
  Company Number: JP-Unichem Pharmaceuticals (USA) Inc-UCM202208-000768

PATIENT
  Age: 78 Year
  Sex: Male

DRUGS (4)
  1. AMIODARONE HYDROCHLORIDE [Suspect]
     Active Substance: AMIODARONE HYDROCHLORIDE
     Indication: Atrial tachycardia
     Route: 048
  2. AMIODARONE HYDROCHLORIDE [Suspect]
     Active Substance: AMIODARONE HYDROCHLORIDE
     Dosage: 48 MG/H
     Route: 042
  3. AMIODARONE HYDROCHLORIDE [Suspect]
     Active Substance: AMIODARONE HYDROCHLORIDE
     Dosage: 25 MG/H
     Route: 042
  4. LANDIOLOL [Suspect]
     Active Substance: LANDIOLOL
     Indication: Atrial tachycardia
     Dosage: UNKNOWN
     Route: 042

REACTIONS (5)
  - Cardiogenic shock [Unknown]
  - Hepatic failure [Unknown]
  - Hypotension [Unknown]
  - Acute kidney injury [Unknown]
  - Drug ineffective [Unknown]
